FAERS Safety Report 5351823-6 (Version None)
Quarter: 2007Q2

REPORT INFORMATION
  Report Type: 
  Country: None (occurrence: None)
  Receive Date: 20070521
  Receipt Date: 20070305
  Transmission Date: 20071010
  Serious: No
  Sender: FDA-Public Use
  Company Number: WAES 0703USA00621

PATIENT
  Age: 62 Year
  Sex: Female
  Weight: 125.6464 kg

DRUGS (14)
  1. JANUVIA [Suspect]
     Indication: DIABETES MELLITUS
     Dosage: 100 MG/DAILY/PO
     Route: 048
     Dates: start: 20070210, end: 20070210
  2. BENADRYL [Concomitant]
  3. BYETTA [Concomitant]
  4. CELEBREX [Concomitant]
  5. DITROPAN [Concomitant]
  6. GLIPIZIDE [Concomitant]
  7. LIPITOR [Concomitant]
  8. ZOLOFT [Concomitant]
  9. ASPIRIN [Concomitant]
  10. DOXEPIN HYDROCHLORIDE [Concomitant]
  11. LIDOCAINE [Concomitant]
  12. METOPROLOL SUCCINATE [Concomitant]
  13. NITROGLYCERIN [Concomitant]
  14. TETRACYCLINE [Concomitant]

REACTIONS (1)
  - IRRITABLE BOWEL SYNDROME [None]
